FAERS Safety Report 11458444 (Version 1)
Quarter: 2015Q3

REPORT INFORMATION
  Report Type: Spontaneous
  Country: FR (occurrence: FR)
  Receive Date: 20150904
  Receipt Date: 20150904
  Transmission Date: 20151125
  Serious: Yes (Death, Hospitalization)
  Sender: FDA-Public Use
  Company Number: FR-PFIZER INC-2015287759

PATIENT
  Age: 87 Year
  Sex: Female

DRUGS (12)
  1. FORLAX [Concomitant]
     Active Substance: POLYETHYLENE GLYCOL 4000
  2. ESOMEPRAZOLE [Concomitant]
     Active Substance: ESOMEPRAZOLE
     Dosage: 1 DF ONCE DAILY IN THE EVENING
  3. PRAXILENE [Suspect]
     Active Substance: NAFRONYL
     Indication: ARTERIAL DISORDER
     Dosage: 200 MG, 2X/DAY
     Route: 048
     Dates: start: 2014, end: 20150726
  4. AMLODIPINE BESILATE [Concomitant]
     Active Substance: AMLODIPINE BESYLATE
     Dosage: 10 MG, DAILY
  5. TAHOR [Suspect]
     Active Substance: ATORVASTATIN CALCIUM
     Indication: DYSLIPIDAEMIA
     Dosage: 20 MG, DAILY
     Route: 048
     Dates: start: 2014, end: 20150725
  6. FOSAMAX [Suspect]
     Active Substance: ALENDRONATE SODIUM
     Indication: OSTEOPOROSIS POSTMENOPAUSAL
     Dosage: 70 MG, WEEKLY
     Route: 048
     Dates: start: 2014, end: 20150726
  7. ZELITREX [Concomitant]
     Active Substance: VALACYCLOVIR HYDROCHLORIDE
     Dosage: 500 MG, DAILY
  8. BACTRIM [Suspect]
     Active Substance: SULFAMETHOXAZOLE\TRIMETHOPRIM
     Indication: ANTIFUNGAL PROPHYLAXIS
     Dosage: 1 DF, 3 TIMES PER WEEK
     Route: 048
     Dates: start: 2014, end: 20150727
  9. ATENOLOL. [Concomitant]
     Active Substance: ATENOLOL
     Dosage: 50 MG, 1X/DAY
  10. ZOPICLONE [Concomitant]
     Active Substance: ZOPICLONE
     Dosage: AT 1 DF ONCE DAILY AT BEDTIME
  11. ARIXTRA [Concomitant]
     Active Substance: FONDAPARINUX SODIUM
     Dosage: 5 MG, DAILY
  12. ASPEGIC [Concomitant]
     Active Substance: ASPIRIN DL-LYSINE
     Dosage: 100 MG, DAILY

REACTIONS (1)
  - Hepatitis [Fatal]

NARRATIVE: CASE EVENT DATE: 20150726
